FAERS Safety Report 12739555 (Version 3)
Quarter: 2017Q1

REPORT INFORMATION
  Report Type: Report from Study
  Country: CA (occurrence: CA)
  Receive Date: 20160913
  Receipt Date: 20170127
  Transmission Date: 20170428
  Serious: Yes (Death, Hospitalization, Disabling)
  Sender: FDA-Public Use
  Company Number: CA-HLSUS-2016-CA-000319

PATIENT
  Age: 82 Year
  Sex: Male
  Weight: 84 kg

DRUGS (8)
  1. NIITRO PATCH [Concomitant]
     Indication: MYOCARDIAL ISCHAEMIA
     Route: 062
  2. GABAPENTIN. [Concomitant]
     Active Substance: GABAPENTIN
     Indication: PAIN
     Dosage: 600 MG QHS
     Route: 048
  3. LEVOCARB [Concomitant]
     Active Substance: CARBIDOPA\LEVODOPA
     Indication: PARKINSON^S DISEASE
     Dosage: 750 MG DAILY
     Route: 048
  4. AMLODIPINE [Concomitant]
     Active Substance: AMLODIPINE BESYLATE
     Indication: HYPERTENSION
     Route: 048
  5. IRBESARTAN. [Concomitant]
     Active Substance: IRBESARTAN
     Indication: HYPERTENSION
     Route: 048
  6. PANTOPRAZOLE [Concomitant]
     Active Substance: PANTOPRAZOLE SODIUM
     Indication: REFLUX GASTRITIS
  7. CLOZARIL [Suspect]
     Active Substance: CLOZAPINE
     Indication: HALLUCINATION
     Dosage: 12.5 MG BID
     Route: 048
     Dates: start: 20151203
  8. EPO [Concomitant]
     Active Substance: ERYTHROPOIETIN
     Indication: RENAL FAILURE
     Route: 048

REACTIONS (4)
  - Parkinson^s disease [Not Recovered/Not Resolved]
  - Hypotension [Unknown]
  - Respiratory arrest [Unknown]
  - Myocardial infarction [Recovered/Resolved with Sequelae]

NARRATIVE: CASE EVENT DATE: 201607
